FAERS Safety Report 23026980 (Version 1)
Quarter: 2023Q4

REPORT INFORMATION
  Report Type: Spontaneous
  Country: AT (occurrence: AT)
  Receive Date: 20231004
  Receipt Date: 20231004
  Transmission Date: 20240110
  Serious: Yes (Other)
  Sender: FDA-Public Use
  Company Number: AT-ELI_LILLY_AND_COMPANY-AT202309014780

PATIENT
  Age: 46 Year
  Sex: Female

DRUGS (2)
  1. ABEMACICLIB [Suspect]
     Active Substance: ABEMACICLIB
     Indication: Breast cancer
     Dosage: 150 MG, BID
     Route: 048
     Dates: start: 20230516
  2. ABEMACICLIB [Suspect]
     Active Substance: ABEMACICLIB
     Dosage: 100 MG, BID
     Route: 048
     Dates: start: 20230607

REACTIONS (7)
  - Gamma-glutamyltransferase increased [Unknown]
  - Blood bilirubin increased [Unknown]
  - Aspartate aminotransferase increased [Unknown]
  - Blood alkaline phosphatase increased [Unknown]
  - Lymphadenopathy [Unknown]
  - Alanine aminotransferase increased [Unknown]
  - Diarrhoea [Recovered/Resolved]

NARRATIVE: CASE EVENT DATE: 20230516
